FAERS Safety Report 15232602 (Version 1)
Quarter: 2018Q3

REPORT INFORMATION
  Report Type: Report from Study
  Country: US (occurrence: US)
  Receive Date: 20180802
  Receipt Date: 20180802
  Transmission Date: 20181010
  Serious: Yes (Death, Hospitalization)
  Sender: FDA-Public Use
  Company Number: US-TAIHO ONCOLOGY  INC-EU-2018-00893

PATIENT
  Age: 68 Year
  Sex: Female
  Weight: 75.18 kg

DRUGS (3)
  1. ZOLOFT [Concomitant]
     Active Substance: SERTRALINE HYDROCHLORIDE
     Indication: DEPRESSION
     Dosage: NI
  2. LONSURF [Suspect]
     Active Substance: TIPIRACIL HYDROCHLORIDE\TRIFLURIDINE
     Indication: COLON CANCER METASTATIC
     Dosage: APPROXIMATELY CYCLE 1?3 COMPLETED
     Route: 048
     Dates: start: 20180611, end: 20180719
  3. LEVOTHYROXINE. [Concomitant]
     Active Substance: LEVOTHYROXINE
     Indication: THYROID DISORDER
     Dosage: NI

REACTIONS (10)
  - Death [Fatal]
  - Urinary tract infection [Unknown]
  - Asthenia [Unknown]
  - Fatigue [Unknown]
  - Lethargy [Unknown]
  - Dehydration [Unknown]
  - Decreased appetite [Unknown]
  - Drug dose omission [Unknown]
  - Drug dose omission [None]
  - Renal failure [Unknown]

NARRATIVE: CASE EVENT DATE: 201806
